FAERS Safety Report 6398681-9 (Version None)
Quarter: 2009Q4

REPORT INFORMATION
  Report Type: 
  Country: None (occurrence: None)
  Receive Date: 20091013
  Receipt Date: 20091006
  Transmission Date: 20100525
  Serious: Yes (Other)
  Sender: FDA-Public Use
  Company Number: IT-AVENTIS-200920313GDDC

PATIENT
  Age: 54 Year
  Sex: Female

DRUGS (4)
  1. ARAVA [Suspect]
     Indication: RHEUMATOID ARTHRITIS
     Route: 048
     Dates: start: 20080715, end: 20090303
  2. ENBREL [Concomitant]
     Dates: start: 20021021
  3. METOCAL [Concomitant]
     Dosage: DOSE: 1 TABLET
     Route: 048
     Dates: start: 20081021
  4. ACECLOFENAC [Concomitant]
     Route: 048
     Dates: start: 20090126

REACTIONS (1)
  - PUSTULAR PSORIASIS [None]
